FAERS Safety Report 23376781 (Version 1)
Quarter: 2024Q1

REPORT INFORMATION
  Report Type: Report from Study
  Country: CA (occurrence: None)
  Receive Date: 20240108
  Receipt Date: 20240108
  Transmission Date: 20240410
  Serious: Yes (Other)
  Sender: FDA-Public Use
  Company Number: 2023A295389

PATIENT
  Sex: Female

DRUGS (5)
  1. TEZSPIRE [Suspect]
     Active Substance: TEZEPELUMAB-EKKO
     Indication: Asthma
     Route: 058
     Dates: start: 20231113
  2. ALVESCO [Concomitant]
     Active Substance: CICLESONIDE
     Dosage: 1 PUFF BID
  3. ADVAIR HFA [Concomitant]
     Active Substance: FLUTICASONE PROPIONATE\SALMETEROL XINAFOATE
     Dosage: 250/25MCG 2 PUFFS BID
  4. SINGULAIR [Concomitant]
     Active Substance: MONTELUKAST SODIUM
  5. ACLIDINIUM BROMIDE [Concomitant]
     Active Substance: ACLIDINIUM BROMIDE

REACTIONS (2)
  - Pneumonia [Recovering/Resolving]
  - Inappropriate schedule of product administration [Unknown]
